FAERS Safety Report 7897111-5 (Version None)
Quarter: 2011Q4

REPORT INFORMATION
  Report Type: 
  Country: None (occurrence: None)
  Receive Date: 20111028
  Receipt Date: 20111028
  Transmission Date: 20120403
  Serious: Yes (Hospitalization)
  Sender: FDA-Public Use
  Company Number: ALL1-2011-02874

PATIENT
  Age: 15 Year
  Sex: Female

DRUGS (3)
  1. INTUNIV [Suspect]
     Indication: PRODUCT USED FOR UNKNOWN INDICATION
     Dosage: 3 MG 1X/DAY:QD ORAL; 1 MG 1X/DAY:QD ORAL; 2 MG 1X/DAY:QD ORAL
     Route: 048
     Dates: start: 20110101, end: 20110101
  2. INTUNIV [Suspect]
     Indication: PRODUCT USED FOR UNKNOWN INDICATION
     Dosage: 3 MG 1X/DAY:QD ORAL; 1 MG 1X/DAY:QD ORAL; 2 MG 1X/DAY:QD ORAL
     Route: 048
     Dates: start: 20110801
  3. INTUNIV [Suspect]
     Indication: PRODUCT USED FOR UNKNOWN INDICATION
     Dosage: 3 MG 1X/DAY:QD ORAL; 1 MG 1X/DAY:QD ORAL; 2 MG 1X/DAY:QD ORAL
     Route: 048
     Dates: start: 20110101, end: 20110801

REACTIONS (4)
  - INTENTIONAL DRUG MISUSE [None]
  - LETHARGY [None]
  - HEART RATE DECREASED [None]
  - INTENTIONAL OVERDOSE [None]
